FAERS Safety Report 5705276-6 (Version None)
Quarter: 2008Q2

REPORT INFORMATION
  Report Type: 
  Country: None (occurrence: None)
  Receive Date: 20080410
  Receipt Date: 20080327
  Transmission Date: 20081010
  Serious: Yes (Other)
  Sender: FDA-Public Use
  Company Number: 230078J08CAN

PATIENT
  Sex: Female

DRUGS (9)
  1. REBIF [Suspect]
     Indication: MULTIPLE SCLEROSIS
     Dates: start: 20040730
  2. REBIF [Suspect]
     Indication: RELAPSING-REMITTING MULTIPLE SCLEROSIS
     Dates: start: 20040730
  3. IBUPROFEN [Concomitant]
  4. CITALOPRAM /00582601/ [Concomitant]
  5. AMITRIPTYLINE /00002201/ [Concomitant]
  6. ARTHROTEC [Concomitant]
  7. BACLOFEN [Concomitant]
  8. RISPERIDONE [Concomitant]
  9. CLONAZEPAM [Concomitant]

REACTIONS (7)
  - AMNESIA [None]
  - DYSARTHRIA [None]
  - HEADACHE [None]
  - HYPOAESTHESIA [None]
  - INJECTION SITE ERYTHEMA [None]
  - PANIC ATTACK [None]
  - URINARY TRACT INFECTION [None]
